FAERS Safety Report 19750628 (Version 11)
Quarter: 2022Q3

REPORT INFORMATION
  Report Type: Report from Study
  Country: US (occurrence: US)
  Receive Date: 20210826
  Receipt Date: 20220623
  Transmission Date: 20221027
  Serious: Yes (Other)
  Sender: FDA-Public Use
  Company Number: NVSC2021US190602

PATIENT
  Sex: Female

DRUGS (1)
  1. TABRECTA [Suspect]
     Active Substance: CAPMATINIB
     Indication: Non-small cell lung cancer
     Dosage: 400 MG, BID
     Route: 048
     Dates: start: 20210804

REACTIONS (16)
  - Neuropathy peripheral [Unknown]
  - Asthenia [Unknown]
  - Nausea [Unknown]
  - Nasal congestion [Unknown]
  - Hypersensitivity [Unknown]
  - Urinary tract infection [Unknown]
  - Peripheral swelling [Unknown]
  - Dizziness [Unknown]
  - Breast swelling [Unknown]
  - Fatigue [Unknown]
  - Vomiting [Unknown]
  - Pain in extremity [Unknown]
  - COVID-19 [Unknown]
  - Diarrhoea [Unknown]
  - Abdominal discomfort [Unknown]
  - Product dose omission issue [Unknown]
